FAERS Safety Report 8817326 (Version 1)
Quarter: 2012Q4

REPORT INFORMATION
  Report Type: 
  Country: IT (occurrence: IT)
  Receive Date: 20121004
  Receipt Date: 20121004
  Transmission Date: 20130627
  Serious: Yes (Disabling)
  Sender: FDA-Public Use
  Company Number: IT-TEVA-361417ISR

PATIENT
  Age: 43 Year
  Sex: Male

DRUGS (1)
  1. TOPIRAMATE [Suspect]
     Indication: TEMPORAL LOBE EPILEPSY
     Route: 065
     Dates: start: 2005

REACTIONS (1)
  - Hereditary optic atrophy [Not Recovered/Not Resolved]
